FAERS Safety Report 10874604 (Version 3)
Quarter: 2015Q2

REPORT INFORMATION
  Report Type: Spontaneous
  Country: TR (occurrence: TR)
  Receive Date: 20150227
  Receipt Date: 20150611
  Transmission Date: 20150821
  Serious: Yes (Other)
  Sender: FDA-Public Use
  Company Number: TR-MYLANLABS-2015M1006363

PATIENT

DRUGS (10)
  1. NOCTURN [Interacting]
     Active Substance: PAROXETINE\PAROXETINE HYDROCHLORIDE
     Indication: PARKINSONISM
     Dosage: 40 MG, QD
     Route: 065
  2. AMIODARONE [Interacting]
     Active Substance: AMIODARONE
     Dosage: 5 MG/KG, UNK
     Route: 042
  3. MIDAZOLAM [Concomitant]
     Active Substance: MIDAZOLAM\MIDAZOLAM HYDROCHLORIDE
     Indication: MAINTENANCE OF ANAESTHESIA
     Dosage: 2 UNK, UNK
     Route: 040
  4. MAGNESIUM [Concomitant]
     Active Substance: MAGNESIUM
     Dosage: 2 MG, UNK
     Route: 065
  5. FENTANYL. [Suspect]
     Active Substance: FENTANYL
     Indication: ANAESTHESIA
     Dosage: 6 ?G/KG, UNK
     Route: 065
  6. MIDAZOLAM [Concomitant]
     Active Substance: MIDAZOLAM\MIDAZOLAM HYDROCHLORIDE
     Indication: PREMEDICATION
     Dosage: 2 MG, UNK
     Route: 042
  7. ROCURONIUM BROMIDE. [Concomitant]
     Active Substance: ROCURONIUM BROMIDE
     Indication: INDUCTION OF ANAESTHESIA
     Dosage: 1.2 MG/KG, UNK
     Route: 065
  8. FENTANYL. [Interacting]
     Active Substance: FENTANYL
     Indication: MAINTENANCE OF ANAESTHESIA
     Dosage: 15 ?G/KG, UNK
     Route: 042
  9. MIDAZOLAM [Concomitant]
     Active Substance: MIDAZOLAM\MIDAZOLAM HYDROCHLORIDE
     Indication: INDUCTION OF ANAESTHESIA
     Dosage: 0.1 MG/KG, UNK
     Route: 065
  10. AZILECT [Interacting]
     Active Substance: RASAGILINE MESYLATE
     Indication: PARKINSONISM
     Dosage: 1 MG, QD
     Route: 065

REACTIONS (8)
  - Drug interaction [Recovered/Resolved]
  - Hyperthermia [Recovered/Resolved]
  - Hypotension [Recovering/Resolving]
  - Drug interaction [Recovering/Resolving]
  - Flushing [Recovered/Resolved]
  - Supraventricular tachycardia [Recovered/Resolved]
  - Hyperhidrosis [Recovered/Resolved]
  - Hypertension [Recovered/Resolved]
